FAERS Safety Report 15198499 (Version 1)
Quarter: 2018Q3

REPORT INFORMATION
  Report Type: Spontaneous
  Country: UM (occurrence: UM)
  Receive Date: 20180627
  Receipt Date: 20180627
  Transmission Date: 20181010
  Serious: Yes (Other)
  Sender: FDA-Public Use
  Company Number: None

PATIENT
  Age: 64 Year
  Sex: Female

DRUGS (1)
  1. VALSARTAN. [Suspect]
     Active Substance: VALSARTAN
     Indication: BLOOD PRESSURE MEASUREMENT
     Dosage: ?          QUANTITY:30 TABLET(S);?
     Route: 048
     Dates: start: 20180621, end: 20180624

REACTIONS (5)
  - Drug ineffective [None]
  - Therapeutic response changed [None]
  - Product substitution issue [None]
  - Throat irritation [None]
  - Cough [None]

NARRATIVE: CASE EVENT DATE: 20180622
